FAERS Safety Report 15029367 (Version 2)
Quarter: 2018Q3

REPORT INFORMATION
  Report Type: Spontaneous
  Country: US (occurrence: US)
  Receive Date: 20180619
  Receipt Date: 20180710
  Transmission Date: 20181010
  Serious: Yes (Other)
  Sender: FDA-Public Use
  Company Number: US-AKORN PHARMACEUTICALS-2018AKN00836

PATIENT
  Age: 13 Year
  Sex: Female
  Weight: 68.27 kg

DRUGS (5)
  1. CLINDAMYCIN GEL [Concomitant]
  2. RETIN?A [Concomitant]
     Active Substance: TRETINOIN
  3. VIORELE [Concomitant]
     Active Substance: DESOGESTREL\ETHINYL ESTRADIOL
  4. MYORISAN [Suspect]
     Active Substance: ISOTRETINOIN
     Indication: ACNE
     Dosage: 30 MG, 1X/DAY
     Route: 048
     Dates: start: 20180522, end: 20180602
  5. BENZOYL PEROXIDE. [Concomitant]
     Active Substance: BENZOYL PEROXIDE

REACTIONS (4)
  - Off label use [Recovered/Resolved]
  - Depression [Unknown]
  - Diarrhoea [Unknown]
  - Nausea [Unknown]

NARRATIVE: CASE EVENT DATE: 2018
